FAERS Safety Report 11897932 (Version 1)
Quarter: 2016Q1

REPORT INFORMATION
  Report Type: Spontaneous
  Country: US (occurrence: None)
  Receive Date: 20160107
  Receipt Date: 20160107
  Transmission Date: 20160526
  Serious: No
  Sender: FDA-Public Use
  Company Number: None

PATIENT
  Age: 72 Year
  Sex: Male
  Weight: 70.31 kg

DRUGS (8)
  1. LEVAQUIN [Suspect]
     Active Substance: LEVOFLOXACIN
     Indication: UPPER RESPIRATORY TRACT INFECTION
     Dosage: 7 PILLS ONCE DAILY BY MOUTH
     Route: 048
     Dates: start: 20150913, end: 20150920
  2. FAMCYCLOVIR [Concomitant]
     Active Substance: FAMCICLOVIR
  3. VITAMIN D3 [Concomitant]
     Active Substance: CHOLECALCIFEROL
  4. METAPROLOL [Concomitant]
  5. TYLENOL [Concomitant]
     Active Substance: ACETAMINOPHEN
  6. PREDNISONE. [Concomitant]
     Active Substance: PREDNISONE
  7. DIAZEPAM. [Concomitant]
     Active Substance: DIAZEPAM
  8. OVER 50 MULTIVITAMIN [Concomitant]

REACTIONS (14)
  - Extremity contracture [None]
  - Vocal cord disorder [None]
  - Initial insomnia [None]
  - Impaired driving ability [None]
  - Middle insomnia [None]
  - Ageusia [None]
  - Dysphonia [None]
  - Dysgeusia [None]
  - Somnolence [None]
  - Arthralgia [None]
  - Abdominal pain [None]
  - Dizziness [None]
  - Pain in extremity [None]
  - Fatigue [None]
